FAERS Safety Report 7746205-3 (Version None)
Quarter: 2011Q3

REPORT INFORMATION
  Report Type: 
  Country: None (occurrence: None)
  Receive Date: 20110913
  Receipt Date: 20110908
  Transmission Date: 20111222
  Serious: Yes (Death, Other)
  Sender: FDA-Public Use
  Company Number: JP-BAYER-201013192BYL

PATIENT
  Age: 60 Year
  Sex: Male
  Weight: 70 kg

DRUGS (15)
  1. LANSOPRAZOLE [Concomitant]
     Dosage: SINCE BEFORE NEXAVAR ADMINISTRATION
     Route: 048
     Dates: end: 20101030
  2. URSO 250 [Concomitant]
     Dosage: SINCE BEFORE NEXAVAR ADMINISTRATION
     Route: 048
     Dates: end: 20101030
  3. LIVACT [Concomitant]
     Dosage: SINCE BEFORE NEXAVAR ADMINISTRATION
     Route: 048
     Dates: end: 20101030
  4. ALDACTONE [Concomitant]
     Dosage: SINCE BEFORE NEXAVAR ADMINISTRATION
     Route: 048
     Dates: end: 20101030
  5. LACTULOSE [Concomitant]
     Indication: PROPHYLAXIS
     Dosage: SINCE BEFORE NEXAVAR ADMINISTRATION
     Route: 048
     Dates: end: 20101030
  6. LASIX [Concomitant]
     Dosage: SINCE BEFORE NEXAVAR ADMINISTRATION
     Route: 048
     Dates: end: 20101030
  7. VERAPAMIL HCL [Concomitant]
     Dosage: SINCE BEFORE NEXAVAR ADMINISTRATION
     Route: 048
     Dates: end: 20101030
  8. ONEALFA [Concomitant]
     Dosage: SINCE BEFORE NEXAVAR ADMINISTRATION
     Route: 048
     Dates: end: 20101030
  9. LEVOTHYROXINE SODIUM [Concomitant]
     Indication: HYPOTHYROIDISM
     Dosage: SINCE BEFORE NEXAVAR ADMINISTRATION
     Route: 048
     Dates: end: 20101030
  10. EVAMYL [Concomitant]
     Indication: INSOMNIA
     Dosage: SINCE BEFORE NEXAVAR ADMINISTRATION
     Route: 048
     Dates: end: 20101030
  11. ALENDRONATE SODIUM [Concomitant]
     Dosage: SINCE BEFORE NEXAVAR ADMINISTRATION
     Route: 048
     Dates: end: 20101030
  12. ASPARTATE CALCIUM [Concomitant]
     Dosage: SINCE BEFORE NEXAVAR ADMINISTRATION
     Route: 048
     Dates: end: 20101030
  13. UREPEARL [Concomitant]
     Indication: PROPHYLAXIS
     Route: 061
     Dates: start: 20100602, end: 20100820
  14. NEXAVAR [Suspect]
     Indication: HEPATIC NEOPLASM MALIGNANT
     Route: 048
     Dates: start: 20100602, end: 20100820
  15. GASCON [Concomitant]
     Dosage: SINCE BEFORE NEXAVAR ADMINISTRATION
     Route: 048
     Dates: end: 20101030

REACTIONS (4)
  - MALAISE [None]
  - HEPATIC NEOPLASM MALIGNANT [None]
  - HEPATIC ENCEPHALOPATHY [None]
  - DECREASED APPETITE [None]
